FAERS Safety Report 9678509 (Version 2)
Quarter: 2013Q4

REPORT INFORMATION
  Report Type: Not Available
  Country: US (occurrence: US)
  Receive Date: 20131108
  Receipt Date: 20131125
  Transmission Date: 20140711
  Serious: Yes (Hospitalization)
  Sender: FDA-Public Use
  Company Number: US-VIROPHARMA INCORPORATED-20131101CINRY5292

PATIENT
  Age: 23 Year
  Sex: Female

DRUGS (7)
  1. CINRYZE (C1 ESTERASE INHIBITOR (HUMAN)) [Suspect]
     Indication: HEREDITARY ANGIOEDEMA
     Route: 042
     Dates: start: 20130412
  2. CINRYZE (C1 ESTERASE INHIBITOR (HUMAN)) [Suspect]
     Indication: PROPHYLAXIS
  3. COUMADIN [Concomitant]
     Route: 048
  4. CARDIAZEM [Concomitant]
     Route: 048
  5. LASIX [Concomitant]
     Route: 048
  6. POTASSIUM [Concomitant]
     Route: 048
  7. BERINERT [Concomitant]
     Route: 042

REACTIONS (6)
  - Device related infection [Recovered/Resolved]
  - Staphylococcal infection [Recovered/Resolved]
  - Subclavian vein thrombosis [Recovered/Resolved]
  - Pneumonia [Recovered/Resolved]
  - Cardiac failure [Recovered/Resolved]
  - Herpes zoster [Unknown]
